FAERS Safety Report 4968976-1 (Version None)
Quarter: 2006Q2

REPORT INFORMATION
  Report Type: 
  Country: None (occurrence: None)
  Receive Date: 20060411
  Receipt Date: 20051017
  Transmission Date: 20061013
  Serious: Yes (Hospitalization)
  Sender: FDA-Public Use
  Company Number: US-MERCK-0510USA07806

PATIENT
  Age: 58 Year
  Sex: Female
  Weight: 81 kg

DRUGS (16)
  1. VIOXX [Suspect]
     Indication: ARTHRITIS
     Route: 048
     Dates: start: 20030715, end: 20050501
  2. NORVASC [Concomitant]
     Indication: HYPERTENSION
     Route: 065
  3. NORVASC [Concomitant]
     Indication: CHEST PAIN
     Route: 065
  4. ATENOLOL [Concomitant]
     Indication: HYPERTENSION
     Route: 065
  5. PREMARIN [Concomitant]
     Indication: HORMONE REPLACEMENT THERAPY
     Route: 065
  6. AMBIEN [Concomitant]
     Indication: INSOMNIA
     Route: 065
  7. PREVACID [Concomitant]
     Indication: OESOPHAGEAL DISORDER
     Route: 065
     Dates: start: 20050101
  8. MAVIK [Concomitant]
     Route: 065
  9. PLAVIX [Concomitant]
     Route: 065
  10. PRAVACHOL [Concomitant]
     Route: 065
  11. ACYCLOVIR [Concomitant]
     Indication: HERPES VIRUS INFECTION
     Route: 065
  12. SYNTHROID [Concomitant]
     Indication: THYROID DISORDER
     Route: 065
  13. VIOXX [Suspect]
     Route: 048
     Dates: start: 20030715, end: 20050501
  14. COMBIVIR [Concomitant]
     Indication: HERPES VIRUS INFECTION
     Route: 065
  15. ZIAGEN [Concomitant]
     Indication: HERPES VIRUS INFECTION
     Route: 065
  16. MOTRIN [Concomitant]
     Indication: ANALGESIC EFFECT
     Route: 065

REACTIONS (7)
  - ATRIOVENTRICULAR BLOCK [None]
  - CARDIAC DISORDER [None]
  - INJURY [None]
  - INTERVERTEBRAL DISC PROTRUSION [None]
  - MYOCARDIAL INFARCTION [None]
  - NECK INJURY [None]
  - ROAD TRAFFIC ACCIDENT [None]
